FAERS Safety Report 5274651-9 (Version None)
Quarter: 2007Q1

REPORT INFORMATION
  Report Type: 
  Country: None (occurrence: None)
  Receive Date: 20070320
  Receipt Date: 20070305
  Transmission Date: 20070707
  Serious: Yes (Death)
  Sender: FDA-Public Use
  Company Number: MEDI-0005456

PATIENT
  Sex: Male

DRUGS (2)
  1. SYNAGIS [Suspect]
     Indication: ANTIVIRAL PROPHYLAXIS
     Dosage: 15 MG/KG, 1 IN 1 M, INTRAMUSCULAR
     Route: 030
     Dates: start: 20061114, end: 20061214
  2. SYNAGIS [Suspect]
     Indication: ANTIVIRAL PROPHYLAXIS
     Dosage: 15 MG/KG, 1 IN 1 M, INTRAMUSCULAR
     Route: 030
     Dates: start: 20061114

REACTIONS (1)
  - DEATH [None]
